FAERS Safety Report 4917319-8 (Version None)
Quarter: 2006Q1

REPORT INFORMATION
  Report Type: 
  Country: None (occurrence: None)
  Receive Date: 20060221
  Receipt Date: 20050930
  Transmission Date: 20060701
  Serious: Yes (Death)
  Sender: FDA-Public Use
  Company Number: US-MERCK-0510USA01913

PATIENT
  Age: 57 Year
  Sex: Female
  Weight: 64 kg

DRUGS (24)
  1. PREVACID [Concomitant]
     Route: 065
  2. VIOXX [Suspect]
     Indication: ARTHRITIS
     Route: 048
     Dates: start: 20031004, end: 20040331
  3. AMITRIPTYLINE HYDROCHLORIDE [Concomitant]
     Route: 065
  4. AVAPRO [Concomitant]
     Route: 065
  5. PROMETHAZINE [Concomitant]
     Route: 065
  6. SEROQUEL [Concomitant]
     Route: 065
  7. SULFASALAZINE [Concomitant]
     Route: 065
  8. TRAMADOL HYDROCHLORIDE [Concomitant]
     Route: 065
  9. TUSSI-BID [Concomitant]
     Route: 065
  10. CELEXA [Concomitant]
     Route: 065
  11. CEPHALEXIN [Concomitant]
     Route: 065
  12. DESONIDE [Concomitant]
     Route: 065
  13. DIAZEPAM [Concomitant]
     Route: 065
  14. DUONEB [Concomitant]
     Route: 065
  15. DURAGESIC-100 [Concomitant]
     Route: 065
  16. LITHIUM CARBONATE [Concomitant]
     Route: 065
  17. MIRTAZAPINE [Concomitant]
     Route: 065
  18. MS CONTIN [Concomitant]
     Route: 065
  19. NORVASC [Concomitant]
     Route: 065
  20. PREDNISONE [Concomitant]
     Route: 065
  21. VERAPAMIL [Concomitant]
     Route: 065
  22. ZITHROMAX [Concomitant]
     Route: 065
  23. ACETAMINOPHEN AND HYDROCODONE BITARTRATE [Concomitant]
     Route: 065
  24. CYCLOBENZAPRINE HYDROCHLORIDE [Concomitant]
     Route: 065

REACTIONS (3)
  - CARDIO-RESPIRATORY ARREST [None]
  - CORONARY ARTERY DISEASE [None]
  - MYOCARDIAL INFARCTION [None]
